FAERS Safety Report 8631261 (Version 5)
Quarter: 2012Q4

REPORT INFORMATION
  Report Type: Report from Study
  Country: CA (occurrence: CA)
  Receive Date: 20120622
  Receipt Date: 20121011
  Transmission Date: 20130627
  Serious: Yes (Hospitalization, Other)
  Sender: FDA-Public Use
  Company Number: CA-CELGENEUS-028-21880-12062117

PATIENT
  Age: 73 Year
  Sex: Male
  Weight: 99.5 kg

DRUGS (24)
  1. REVLIMID [Suspect]
     Indication: MULTIPLE MYELOMA
     Dosage: 25 Milligram
     Route: 048
     Dates: start: 20110616, end: 20111025
  2. REVLIMID [Suspect]
     Dosage: 25 Milligram
     Route: 048
     Dates: start: 20111201, end: 20120210
  3. REVLIMID [Suspect]
     Dosage: 25 Milligram
     Route: 048
     Dates: start: 20120223, end: 20120704
  4. DEXAMETHASONE [Suspect]
     Indication: MULTIPLE MYELOMA
     Dosage: 40 Milligram
     Route: 065
     Dates: start: 20110616, end: 20111025
  5. DEXAMETHASONE [Suspect]
     Dosage: 40 Milligram
     Route: 065
     Dates: start: 20111201, end: 20120210
  6. DEXAMETHASONE [Suspect]
     Dosage: 40 Milligram
     Route: 065
     Dates: start: 20120223, end: 20120704
  7. THALIDOMIDE [Suspect]
     Indication: MULTIPLE MYELOMA
     Route: 048
     Dates: start: 20090718, end: 20101229
  8. ASA [Concomitant]
     Indication: GENERAL BODY PAIN
     Dosage: 81 Milligram
     Route: 048
     Dates: start: 20090917
  9. COLACE [Concomitant]
     Indication: CONSTIPATION
     Dosage: 100 Milligram
     Route: 048
     Dates: start: 20091127
  10. EPREX [Concomitant]
     Indication: ANEMIA
     Dosage: 40000 IU (International Unit)
     Route: 058
     Dates: start: 20111226
  11. LASIX [Concomitant]
     Indication: CORONARY HEART DISEASE
     Dosage: 20 Milligram
     Route: 048
     Dates: start: 201001
  12. LIPITOR [Concomitant]
     Indication: HYPERCHOLESTEROLEMIA
     Dosage: 80 Milligram
     Route: 048
     Dates: start: 20090917
  13. LOPRESSOR [Concomitant]
     Indication: HYPERTENSION
     Dosage: 50 Milligram
     Route: 048
     Dates: start: 20100217
  14. LOSEC [Concomitant]
     Indication: GERD
     Dosage: 20 Milligram
     Route: 048
     Dates: start: 20090917
  15. PAMIDRONATE [Concomitant]
     Indication: OSTEOPENIA
     Dosage: 1 Tablet
     Route: 041
     Dates: start: 20091127
  16. PLAVIX [Concomitant]
     Indication: CORONARY HEART DISEASE
     Dosage: 75 Milligram
     Route: 048
     Dates: start: 200412, end: 20120529
  17. PLAVIX [Concomitant]
     Dosage: 75 Milligram
     Route: 048
     Dates: start: 20120607
  18. REPLAVITIVE [Concomitant]
     Indication: SUPPLEMENTATION THERAPY
     Dosage: 1 Tablet
     Route: 048
     Dates: start: 20090917
  19. SENOKOT [Concomitant]
     Indication: CONSTIPATION
     Dosage: 1-2 tablet
     Route: 048
     Dates: start: 20091117
  20. SULFATRIM DS [Concomitant]
     Indication: ANTI-INFECTIVE THERAPY
     Dosage: 1 Tablet
     Route: 048
     Dates: start: 200910
  21. TYLENOL ARTHRITIS [Concomitant]
     Indication: GENERAL BODY PAIN
     Dosage: 650 Milligram
     Route: 048
     Dates: start: 20091127
  22. WARFARIN [Concomitant]
     Indication: ATRIAL FIBRILLATION
     Dosage: 5 Milligram
     Route: 048
     Dates: start: 20111102, end: 20120529
  23. WARFARIN [Concomitant]
     Dosage: 5 Milligram
     Route: 048
     Dates: start: 20120607
  24. HEPARIN [Concomitant]
     Indication: ATRIAL FIBRILLATION
     Dosage: 18000 IU (International Unit)
     Route: 058
     Dates: start: 20120530, end: 20120604

REACTIONS (1)
  - Urinary retention [Recovered/Resolved]
